FAERS Safety Report 7629056-X (Version None)
Quarter: 2011Q3

REPORT INFORMATION
  Report Type: 
  Country: None (occurrence: None)
  Receive Date: 20110714
  Receipt Date: 20110708
  Transmission Date: 20111222
  Serious: Yes (Death, Hospitalization)
  Sender: FDA-Public Use
  Company Number: 2011SP019476

PATIENT
  Age: 55 Year
  Sex: Male
  Weight: 58.96 kg

DRUGS (31)
  1. INTRON A [Suspect]
     Indication: HEPATITIS C
     Dates: start: 20110110, end: 20110314
  2. COMBIVENT [Concomitant]
  3. DEXTROSE 50% IN WATER [Concomitant]
  4. CATAPRES-TTS-2 [Concomitant]
  5. DIFLUCAN [Concomitant]
  6. HEPARIN SODIUM [Concomitant]
  7. LANTUS [Concomitant]
  8. ATROPINE SULFATE [Concomitant]
  9. TUSSIONEX [Concomitant]
  10. FENTANYL/NS [Concomitant]
  11. SOLU-MEDROL [Concomitant]
  12. REGLAN [Concomitant]
  13. DRONEDARONE HCL [Concomitant]
  14. PRILOSEC [Concomitant]
  15. NORVASC [Concomitant]
  16. ALDACTONE [Concomitant]
  17. GLUCOSE [Concomitant]
  18. REBETOL [Suspect]
     Indication: HEPATITIS C
     Dosage: 1000 MG;QD;PO
     Route: 048
     Dates: start: 20110110, end: 20110404
  19. VERSED [Concomitant]
  20. ALBUTEROL SULFATE AUTOHALER [Concomitant]
  21. HUMULIN R/NOVOLIN R [Concomitant]
  22. PROTONIX [Concomitant]
  23. SODIUM CHLORIDE [Concomitant]
  24. TYLENOL-500 [Concomitant]
  25. DORIBAX [Concomitant]
  26. XANAX [Concomitant]
  27. GLUCAGON [Concomitant]
  28. ULTRAM [Concomitant]
  29. THEOPHYLLINE [Concomitant]
  30. HEPARIN LOCK-FLUSH [Concomitant]
  31. NITROGLYCERIN [Concomitant]

REACTIONS (20)
  - HYPOXIA [None]
  - ASTHENIA [None]
  - DECREASED APPETITE [None]
  - RESPIRATORY DISTRESS [None]
  - WHITE BLOOD CELL COUNT DECREASED [None]
  - PLATELET COUNT DECREASED [None]
  - PNEUMONIA [None]
  - DYSPNOEA [None]
  - NAUSEA [None]
  - DIZZINESS [None]
  - CONSTIPATION [None]
  - BLOOD CHLORIDE DECREASED [None]
  - VOMITING [None]
  - CREPITATIONS [None]
  - BLOOD GLUCOSE DECREASED [None]
  - CHILLS [None]
  - PULMONARY OEDEMA [None]
  - PCO2 DECREASED [None]
  - DEHYDRATION [None]
  - COUGH [None]
